FAERS Safety Report 9108179 (Version 1)
Quarter: 2013Q1

REPORT INFORMATION
  Report Type: Spontaneous
  Country: FR (occurrence: FR)
  Receive Date: 20130221
  Receipt Date: 20130221
  Transmission Date: 20140127
  Serious: Yes (Death)
  Sender: FDA-Public Use
  Company Number: -SANOFI-AVENTIS-2013SA015132

PATIENT
  Age: 88 Year
  Sex: Male

DRUGS (2)
  1. RIFADINE [Suspect]
     Indication: PRODUCT USED FOR UNKNOWN INDICATION
     Route: 065
     Dates: start: 20120628, end: 20120710
  2. OFLOXACIN [Suspect]
     Indication: PRODUCT USED FOR UNKNOWN INDICATION
     Route: 065
     Dates: start: 20120628, end: 20120710

REACTIONS (3)
  - Skin mass [Fatal]
  - Insomnia [Recovered/Resolved]
  - Burning sensation [Recovered/Resolved]
